FAERS Safety Report 11614935 (Version 1)
Quarter: 2015Q4

REPORT INFORMATION
  Report Type: Spontaneous
  Country: US (occurrence: None)
  Receive Date: 20151008
  Receipt Date: 20151008
  Transmission Date: 20160304
  Serious: Yes (Hospitalization)
  Sender: FDA-Public Use
  Company Number: None

PATIENT
  Age: 67 Year
  Sex: Male

DRUGS (1)
  1. FERRIC NA GLUCONATE [Suspect]
     Active Substance: SODIUM FERRIC GLUCONATE COMPLEX
     Indication: IRON DEFICIENCY ANAEMIA
     Route: 042
     Dates: start: 20151005, end: 20151005

REACTIONS (4)
  - Dizziness [None]
  - Hyperhidrosis [None]
  - Hypotension [None]
  - Asthenia [None]

NARRATIVE: CASE EVENT DATE: 20151005
